FAERS Safety Report 24406656 (Version 1)
Quarter: 2024Q4

REPORT INFORMATION
  Report Type: Spontaneous
  Country: US (occurrence: None)
  Receive Date: 20241006
  Receipt Date: 20241006
  Transmission Date: 20250115
  Serious: Yes (Disabling, Other)
  Sender: Public
  Company Number: None

PATIENT
  Age: 20 Year
  Sex: Female
  Weight: 85.5 kg

DRUGS (1)
  1. COSENTYX [Suspect]
     Active Substance: SECUKINUMAB
     Indication: Hidradenitis
     Dates: start: 20240415, end: 20240731

REACTIONS (2)
  - Fungal infection [None]
  - Drug resistance [None]

NARRATIVE: CASE EVENT DATE: 20240506
